FAERS Safety Report 17006391 (Version 5)
Quarter: 2021Q2

REPORT INFORMATION
  Report Type: Other
  Country: CA (occurrence: CA)
  Receive Date: 20191107
  Receipt Date: 20210608
  Transmission Date: 20210716
  Serious: No
  Sender: FDA-Public Use
  Company Number: CA-TOLMAR, INC.-19CA000798

PATIENT
  Sex: Male

DRUGS (5)
  1. ANDROCUR [Concomitant]
     Active Substance: CYPROTERONE ACETATE
     Indication: PRODUCT USED FOR UNKNOWN INDICATION
     Dosage: 50 MG, QD
     Route: 065
     Dates: end: 202105
  2. ELIGARD [Suspect]
     Active Substance: LEUPROLIDE ACETATE
     Dosage: 45 MG, Q 6 MONTH
     Route: 058
     Dates: start: 20201019
  3. ANDROCUR [Concomitant]
     Active Substance: CYPROTERONE ACETATE
     Dosage: 50 MG, BID
     Route: 065
     Dates: start: 202105
  4. ELIGARD [Suspect]
     Active Substance: LEUPROLIDE ACETATE
     Indication: PROSTATE CANCER
     Dosage: 45 MG, Q 6 MONTH
     Route: 058
     Dates: start: 20171103
  5. ELIGARD [Suspect]
     Active Substance: LEUPROLIDE ACETATE
     Dosage: 45 MG, Q 6 MONTH
     Route: 058
     Dates: start: 20210517

REACTIONS (4)
  - Pain [Recovering/Resolving]
  - Hot flush [Recovering/Resolving]
  - Hyperhidrosis [Not Recovered/Not Resolved]
  - Micturition urgency [Not Recovered/Not Resolved]
